FAERS Safety Report 9536250 (Version 1)
Quarter: 2013Q3

REPORT INFORMATION
  Report Type: Spontaneous
  Country: US (occurrence: None)
  Receive Date: 20130917
  Receipt Date: 20130917
  Transmission Date: 20140515
  Serious: Yes (Other)
  Sender: FDA-Public Use
  Company Number: None

PATIENT
  Age: 67 Year
  Sex: Female
  Weight: 80.74 kg

DRUGS (7)
  1. AMLODIPINE BESYLATE [Suspect]
     Indication: HYPERTENSION
     Dosage: 5 MG 1 TABLET DAILY 1 DAILY BY MOUTH
     Route: 048
     Dates: start: 20130816, end: 20130819
  2. METFORMIN HCL ER TABS 500MG [Concomitant]
  3. MULTI VITAMIN [Concomitant]
  4. CALCIUM [Concomitant]
  5. B COMPLEX POTASSIUM [Concomitant]
  6. MAGNESIUM [Concomitant]
  7. FISH OIL [Concomitant]

REACTIONS (1)
  - Muscle spasms [None]
